FAERS Safety Report 8885406 (Version 1)
Quarter: 2012Q4

REPORT INFORMATION
  Report Type: 
  Country: US (occurrence: US)
  Receive Date: 20121101
  Receipt Date: 20121101
  Transmission Date: 20130627
  Serious: Yes (Other)
  Sender: FDA-Public Use
  Company Number: US-ELI_LILLY_AND_COMPANY-US201210006947

PATIENT
  Sex: Male

DRUGS (9)
  1. ADCIRCA [Suspect]
     Dosage: UNK
  2. TRACLEER [Concomitant]
     Indication: PULMONARY ARTERIAL HYPERTENSION
     Dosage: UNK
     Dates: start: 20120622, end: 20120727
  3. METOLAZONE [Concomitant]
  4. SPIRONOLACTONE [Concomitant]
  5. COUMADIN [Concomitant]
  6. FUROSEMIDE [Concomitant]
  7. SIMVASTATIN [Concomitant]
  8. COREG [Concomitant]
  9. FINASTERIDE [Concomitant]

REACTIONS (7)
  - Anaemia macrocytic [Unknown]
  - Deafness [Recovering/Resolving]
  - Visual acuity reduced [Unknown]
  - Visual brightness [Unknown]
  - Vision blurred [Unknown]
  - Condition aggravated [Unknown]
  - Alopecia [Unknown]
